FAERS Safety Report 10672782 (Version 2)
Quarter: 2015Q1

REPORT INFORMATION
  Report Type: Report from Study
  Country: DE (occurrence: DE)
  Receive Date: 20141223
  Receipt Date: 20150122
  Transmission Date: 20150720
  Serious: Yes (Death, Other)
  Sender: FDA-Public Use
  Company Number: DE-ABBVIE-14P-062-1325698-00

PATIENT
  Age: 80 Year
  Sex: Male

DRUGS (1)
  1. TRENANTONE [Suspect]
     Active Substance: LEUPROLIDE ACETATE
     Indication: PROSTATE CANCER
     Route: 065
     Dates: start: 20121215, end: 20140819

REACTIONS (4)
  - Hypertension [Fatal]
  - Anaemia of malignant disease [Fatal]
  - Pleural effusion [Fatal]
  - Cardiac failure [Fatal]
